FAERS Safety Report 4684323-7 (Version None)
Quarter: 2005Q2

REPORT INFORMATION
  Report Type: 
  Country: None (occurrence: None)
  Receive Date: 20050607
  Receipt Date: 20050531
  Transmission Date: 20051028
  Serious: Yes (Life-Threatening)
  Sender: FDA-Public Use
  Company Number: 2005AP03146

PATIENT
  Age: 54 Year
  Sex: Female

DRUGS (11)
  1. DIPRIVAN [Suspect]
     Route: 042
     Dates: start: 20050510, end: 20050510
  2. SEVOFLURANE [Suspect]
     Route: 055
     Dates: start: 20050510, end: 20050510
  3. FENTANEST [Suspect]
     Route: 042
     Dates: start: 20050510, end: 20050510
  4. EPHEDRIN [Suspect]
     Route: 042
     Dates: start: 20050510, end: 20050510
  5. PURSENNID [Concomitant]
     Route: 048
     Dates: start: 20050509, end: 20050509
  6. LENDORM [Concomitant]
     Route: 048
     Dates: start: 20050509, end: 20050509
  7. TAKEPRON [Concomitant]
     Route: 048
     Dates: start: 20050509
  8. NITROUS OXIDE [Concomitant]
     Route: 055
     Dates: start: 20050510, end: 20050510
  9. MUSCULAX [Concomitant]
     Route: 042
     Dates: start: 20050510, end: 20050510
  10. ATROPINE SULFATE [Concomitant]
     Route: 030
     Dates: start: 20050510, end: 20050510
  11. ATARAX [Concomitant]
     Route: 030
     Dates: start: 20050510, end: 20050510

REACTIONS (2)
  - ACIDOSIS [None]
  - HYPERKALAEMIA [None]
